FAERS Safety Report 10252331 (Version 1)
Quarter: 2014Q2

REPORT INFORMATION
  Report Type: Spontaneous
  Country: KR (occurrence: KR)
  Receive Date: 20140623
  Receipt Date: 20140623
  Transmission Date: 20141212
  Serious: Yes (Other)
  Sender: FDA-Public Use
  Company Number: KR-NAPPMUNDI-GBR-2014-0018746

PATIENT
  Sex: Male

DRUGS (1)
  1. IR CODON 5 MG [Suspect]
     Indication: GASTROINTESTINAL PAIN
     Dosage: 10 MG, 3 OR 4 TIMES DAILY
     Route: 048

REACTIONS (1)
  - Hepatic cyst [Unknown]
